FAERS Safety Report 10970624 (Version 2)
Quarter: 2015Q2

REPORT INFORMATION
  Report Type: Spontaneous
  Country: US (occurrence: US)
  Receive Date: 20150331
  Receipt Date: 20150504
  Transmission Date: 20150821
  Serious: Yes (Other)
  Sender: FDA-Public Use
  Company Number: US-BAYER-2015-087042

PATIENT
  Age: 32 Year
  Sex: Female
  Weight: 59.86 kg

DRUGS (1)
  1. MIRENA [Suspect]
     Active Substance: LEVONORGESTREL
     Indication: CONTRACEPTION
     Dosage: 20 MCG/24HR, CONT
     Route: 015
     Dates: start: 20150306, end: 20150328

REACTIONS (3)
  - Device dislocation [None]
  - Abdominal pain [None]
  - Uterine perforation [None]

NARRATIVE: CASE EVENT DATE: 20150306
